FAERS Safety Report 16992953 (Version 2)
Quarter: 2019Q4

REPORT INFORMATION
  Report Type: Spontaneous
  Country: DE (occurrence: DE)
  Receive Date: 20191105
  Receipt Date: 20191122
  Transmission Date: 20200122
  Serious: Yes (Other)
  Sender: FDA-Public Use
  Company Number: DE-SA-2019SA305388

PATIENT
  Age: 53 Year
  Sex: Female

DRUGS (1)
  1. DUPILUMAB [Suspect]
     Active Substance: DUPILUMAB
     Indication: NEURODERMATITIS
     Dosage: 300 MG, QW
     Route: 058

REACTIONS (12)
  - Intestinal fistula [Recovered/Resolved]
  - Inappropriate schedule of product administration [Unknown]
  - Crohn^s disease [Recovered/Resolved]
  - Enterovesical fistula [Recovered/Resolved]
  - Abdominal distension [Recovered/Resolved]
  - Constipation [Recovered/Resolved]
  - Vomiting [Recovered/Resolved]
  - Cystitis noninfective [Recovered/Resolved]
  - Abscess [Recovered/Resolved]
  - Abdominal discomfort [Recovered/Resolved]
  - Sepsis [Recovered/Resolved]
  - Diarrhoea [Recovered/Resolved]
